FAERS Safety Report 10151811 (Version 3)
Quarter: 2014Q2

REPORT INFORMATION
  Report Type: Report from Study
  Country: CL (occurrence: CL)
  Receive Date: 20140505
  Receipt Date: 20140606
  Transmission Date: 20141212
  Serious: Yes (Other)
  Sender: FDA-Public Use
  Company Number: CL-BRISTOL-MYERS SQUIBB COMPANY-19893072

PATIENT
  Age: 66 Year
  Sex: Female

DRUGS (6)
  1. ABATACEPT SUBQ INJECTION 125MG/ML [Suspect]
     Indication: RHEUMATOID ARTHRITIS
     Dosage: 17JUN13-UNK
     Route: 058
     Dates: start: 20120901
  2. METHOTREXATE [Concomitant]
  3. FOLIC ACID [Concomitant]
  4. ENALAPRIL MALEATE + HCTZ [Concomitant]
  5. CALCIUM [Concomitant]
  6. COLECALCIFEROL [Concomitant]

REACTIONS (2)
  - Cataract [Recovering/Resolving]
  - Hypersensitivity [Recovering/Resolving]
